FAERS Safety Report 5622165-6 (Version None)
Quarter: 2008Q1

REPORT INFORMATION
  Report Type: 
  Country: None (occurrence: None)
  Receive Date: 20080206
  Receipt Date: 20080122
  Transmission Date: 20080703
  Serious: Yes (Other)
  Sender: FDA-Public Use
  Company Number: 2008AL000369

PATIENT
  Age: 35 Year
  Sex: Female

DRUGS (1)
  1. CITALOPRAM HYDROBROMIDE [Suspect]
     Indication: MAJOR DEPRESSION
     Dosage: 40 MG;QD;

REACTIONS (2)
  - DRUG TOXICITY [None]
  - POSITRON EMISSION TOMOGRAM ABNORMAL [None]
